FAERS Safety Report 8523843 (Version 4)
Quarter: 2012Q4

REPORT INFORMATION
  Report Type: Report from Study
  Country: KR (occurrence: KR)
  Receive Date: 20120420
  Receipt Date: 20121112
  Transmission Date: 20130627
  Serious: Yes (Death, Hospitalization)
  Sender: FDA-Public Use
  Company Number: KR-ROCHE-1058994

PATIENT
  Age: 74 Year
  Sex: Male
  Weight: 53 kg

DRUGS (22)
  1. TRASTUZUMAB [Suspect]
     Indication: GASTRIC CANCER
     Route: 042
     Dates: start: 20110112, end: 20120416
  2. TRASTUZUMAB [Suspect]
     Route: 042
     Dates: start: 20120319
  3. OXALIPLATIN [Suspect]
     Indication: GASTRIC CANCER
     Route: 042
     Dates: start: 20110112
  4. OXALIPLATIN [Suspect]
     Route: 042
     Dates: start: 20120319
  5. OXALIPLATIN [Suspect]
     Dosage: date of last dose is 19/Sep/2012
     Route: 042
     Dates: start: 20120905
  6. CAPECITABINE [Suspect]
     Indication: GASTRIC CANCER
     Route: 048
     Dates: start: 20110112
  7. CAPECITABINE [Suspect]
     Route: 048
     Dates: start: 20120319
  8. CAPECITABINE [Suspect]
     Route: 048
     Dates: start: 20120905
  9. SODIUM BICARBONATE [Concomitant]
     Route: 065
     Dates: start: 20120112
  10. RAMOSETRON [Concomitant]
     Route: 065
     Dates: start: 20120112
  11. DEXAMETHASONE [Concomitant]
     Route: 065
     Dates: start: 20120112
  12. GABAPENTIN [Concomitant]
     Route: 065
     Dates: start: 20120601
  13. TARGIN [Concomitant]
     Dosage: 10/5 mg daily
     Route: 065
  14. MEGESTROL ACETATE [Concomitant]
     Route: 065
     Dates: start: 20120503
  15. RANITIDINE [Concomitant]
     Route: 065
     Dates: start: 20120112
  16. IBANDRONATE [Concomitant]
     Route: 065
     Dates: start: 20120905
  17. TIZANIDINE HCL [Concomitant]
     Route: 065
     Dates: start: 20120901
  18. ITOPRIDE HYDROCHLORIDE [Concomitant]
     Route: 065
     Dates: start: 20120901
  19. ACECLOFENAC [Concomitant]
     Route: 065
     Dates: start: 20120901
  20. LIMAPROST [Concomitant]
     Route: 065
     Dates: start: 20120901
  21. TRIAMCINOLON [Concomitant]
     Route: 065
     Dates: start: 20120901, end: 20120901
  22. FAMOTIDINE [Concomitant]
     Route: 065
     Dates: start: 20120925, end: 20120927

REACTIONS (2)
  - Pneumonia [Not Recovered/Not Resolved]
  - Pneumonia [Fatal]
